FAERS Safety Report 16983305 (Version 1)
Quarter: 2019Q4

REPORT INFORMATION
  Report Type: Spontaneous
  Country: US (occurrence: US)
  Receive Date: 20190916
  Receipt Date: 20190916
  Transmission Date: 20200122
  Serious: No
  Sender: FDA-Public Use
  Company Number: None

PATIENT
  Age: 28 Year
  Sex: Female

DRUGS (1)
  1. AZATHIOPRINE TAB 50MG [Suspect]
     Active Substance: AZATHIOPRINE
     Indication: AUTOIMMUNE HEPATITIS
     Route: 048
     Dates: start: 20190912, end: 20190914

REACTIONS (2)
  - Abdominal discomfort [None]
  - Drug intolerance [None]

NARRATIVE: CASE EVENT DATE: 20190912
